FAERS Safety Report 8096762-5 (Version None)
Quarter: 2012Q1

REPORT INFORMATION
  Report Type: 
  Country: None (occurrence: None)
  Receive Date: 20120129
  Receipt Date: 20111104
  Transmission Date: 20120608
  Serious: No
  Sender: FDA-Public Use
  Company Number: US-ABBOTT-11P-163-0860908-00

PATIENT
  Sex: Female

DRUGS (1)
  1. HUMIRA [Suspect]
     Indication: RHEUMATOID ARTHRITIS
     Route: 058
     Dates: start: 20110901

REACTIONS (9)
  - TINNITUS [None]
  - CHILLS [None]
  - STOMATITIS [None]
  - FLUSHING [None]
  - COUGH [None]
  - ORAL DISCOMFORT [None]
  - WHEEZING [None]
  - THROAT IRRITATION [None]
  - HOT FLUSH [None]
